FAERS Safety Report 9307845 (Version 1)
Quarter: 2013Q2

REPORT INFORMATION
  Report Type: Spontaneous
  Country: JP (occurrence: JP)
  Receive Date: 20130524
  Receipt Date: 20130524
  Transmission Date: 20140414
  Serious: Yes (Hospitalization)
  Sender: FDA-Public Use
  Company Number: JP-ELI_LILLY_AND_COMPANY-JP201305005595

PATIENT
  Age: 65 Year
  Sex: Male

DRUGS (3)
  1. CYMBALTA [Suspect]
     Indication: DIABETIC NEUROPATHY
     Dosage: 20 MG, EACH EVENING
     Route: 048
     Dates: start: 20120530, end: 20121119
  2. CYMBALTA [Suspect]
     Dosage: 40 MG, EACH EVENING
     Route: 048
     Dates: start: 20121120, end: 20121130
  3. CYMBALTA [Suspect]
     Dosage: 20 MG, EACH EVENING
     Route: 048
     Dates: start: 20130412, end: 20130417

REACTIONS (2)
  - Brain stem haemorrhage [Recovered/Resolved]
  - Diplopia [Recovered/Resolved]
